FAERS Safety Report 18226414 (Version 1)
Quarter: 2020Q3

REPORT INFORMATION
  Report Type: Spontaneous
  Country: FR (occurrence: FR)
  Receive Date: 20200903
  Receipt Date: 20200903
  Transmission Date: 20201103
  Serious: Yes (Other)
  Sender: FDA-Public Use
  Company Number: FR-TEVA-2020-FR-1822483

PATIENT
  Age: 84 Year
  Sex: Female

DRUGS (4)
  1. SPIRONOLACTONE. [Concomitant]
     Active Substance: SPIRONOLACTONE
  2. ALTIZIDE [Concomitant]
     Active Substance: ALTHIAZIDE
  3. LETROZOLE. [Suspect]
     Active Substance: LETROZOLE
     Indication: ADJUVANT THERAPY
     Dosage: UNIT DOSE : 2.5 MILLIGRAM
     Route: 048
     Dates: start: 201912, end: 20200207
  4. LEXOMIL [Concomitant]
     Active Substance: BROMAZEPAM

REACTIONS (1)
  - Drug eruption [Recovering/Resolving]

NARRATIVE: CASE EVENT DATE: 20200204
